FAERS Safety Report 6888189-6 (Version None)
Quarter: 2010Q3

REPORT INFORMATION
  Report Type: 
  Country: None (occurrence: None)
  Receive Date: 20100730
  Receipt Date: 20100719
  Transmission Date: 20110219
  Serious: Yes (Hospitalization, Other)
  Sender: FDA-Public Use
  Company Number: US-PFIZER INC-2010090646

PATIENT
  Sex: Male
  Weight: 89.342 kg

DRUGS (10)
  1. REVATIO [Suspect]
     Indication: PULMONARY HYPERTENSION
     Dosage: 20 MG, 3X/DAY
     Route: 048
     Dates: start: 20070101, end: 20100606
  2. DILANTIN-125 [Suspect]
     Indication: CONVULSION
     Dosage: UNK
     Dates: start: 20100101
  3. COREG [Suspect]
     Indication: CARDIAC DISORDER
     Dosage: 6.25 MG, 2X/DAY
     Route: 048
  4. KEPPRA [Suspect]
     Indication: CONVULSION
     Dosage: UNK
     Dates: start: 20100101
  5. BUMETANIDE [Concomitant]
     Dosage: UNK
  6. PREDNISOLONE [Concomitant]
     Dosage: UNK
  7. SPIRONOLACTONE [Concomitant]
     Dosage: UNK
  8. SYNTHROID [Concomitant]
     Dosage: 0.75 (UNITS UNK)
  9. WARFARIN [Concomitant]
     Dosage: 03 MG (WRITTEN AS IS)
  10. ARANESP [Concomitant]
     Indication: HAEMOGLOBIN DECREASED
     Dosage: UNK

REACTIONS (8)
  - ABASIA [None]
  - CONVULSION [None]
  - DYSPNOEA [None]
  - FATIGUE [None]
  - HAEMOGLOBIN DECREASED [None]
  - HEARING IMPAIRED [None]
  - HEART RATE IRREGULAR [None]
  - OVERDOSE [None]
